FAERS Safety Report 8542197-8 (Version None)
Quarter: 2012Q3

REPORT INFORMATION
  Report Type: 
  Country: None (occurrence: None)
  Receive Date: 20120726
  Receipt Date: 20111010
  Transmission Date: 20120928
  Serious: No
  Sender: FDA-Public Use
  Company Number: US-ASTRAZENECA-2011SE61468

PATIENT
  Age: 48 Year
  Sex: Female

DRUGS (1)
  1. SEROQUEL [Suspect]
     Indication: BIPOLAR DISORDER
     Dosage: GOING TO DECREASE TO 50 MG IN THE MORNING AND 50 TO 100 MG IN THE EVENING
     Route: 048

REACTIONS (4)
  - BRADYPHRENIA [None]
  - FATIGUE [None]
  - ILL-DEFINED DISORDER [None]
  - WEIGHT DECREASED [None]
